FAERS Safety Report 25291926 (Version 1)
Quarter: 2025Q2

REPORT INFORMATION
  Report Type: Spontaneous
  Country: US (occurrence: US)
  Receive Date: 20250510
  Receipt Date: 20250510
  Transmission Date: 20250717
  Serious: No
  Sender: SANOFI AVENTIS
  Company Number: US-SA-2025SA117219

PATIENT
  Age: 76 Year
  Sex: Male
  Weight: 81.82 kg

DRUGS (2)
  1. DUPIXENT [Suspect]
     Active Substance: DUPILUMAB
     Indication: Nasal polyps
     Dosage: 300 MG, QOW
     Route: 058
     Dates: start: 20250327
  2. FORTEO [Concomitant]
     Active Substance: TERIPARATIDE

REACTIONS (14)
  - Injection site pain [Unknown]
  - Injection site bruising [Unknown]
  - Injection site mass [Unknown]
  - Infection [Recovering/Resolving]
  - Hypogeusia [Recovering/Resolving]
  - Hyposmia [Recovering/Resolving]
  - Facial pain [Recovering/Resolving]
  - Condition aggravated [Recovering/Resolving]
  - Ear pain [Recovering/Resolving]
  - Condition aggravated [Recovering/Resolving]
  - Facial discomfort [Recovering/Resolving]
  - Condition aggravated [Recovering/Resolving]
  - Ear discomfort [Recovering/Resolving]
  - Condition aggravated [Recovering/Resolving]

NARRATIVE: CASE EVENT DATE: 20250101
